FAERS Safety Report 12059241 (Version 1)
Quarter: 2016Q1

REPORT INFORMATION
  Report Type: Spontaneous
  Country: None (occurrence: None)
  Receive Date: 20160209
  Receipt Date: 20160209
  Transmission Date: 20160526
  Serious: No
  Sender: FDA-Public Use
  Company Number: None

PATIENT
  Age: 67 Year
  Sex: Female
  Weight: 64.41 kg

DRUGS (3)
  1. LEVAQUIN [Suspect]
     Active Substance: LEVOFLOXACIN
     Indication: BARTONELLOSIS
     Route: 048
  2. VITAMINS [Concomitant]
     Active Substance: VITAMINS
  3. IBUPROPHEN [Concomitant]
     Active Substance: IBUPROFEN

REACTIONS (3)
  - Tendonitis [None]
  - Arthritis [None]
  - Peripheral swelling [None]

NARRATIVE: CASE EVENT DATE: 20160111
